FAERS Safety Report 4335886-2 (Version None)
Quarter: 2004Q2

REPORT INFORMATION
  Report Type: 
  Country: None (occurrence: None)
  Receive Date: 20040405
  Receipt Date: 20040323
  Transmission Date: 20050107
  Serious: Yes (Other)
  Sender: FDA-Public Use
  Company Number: DE-JNJFOC-20040205727

PATIENT
  Age: 70 Year
  Sex: Female

DRUGS (2)
  1. REMINYL [Suspect]
     Indication: DEMENTIA
     Dosage: 4 MG, 2 IN 1 DAY, ORAL
     Route: 048
  2. STATIN (CHOLESTEROL - AND TRIGLYCERIDE REDUCERS) [Suspect]
     Indication: HYPERLIPIDAEMIA

REACTIONS (3)
  - ALANINE AMINOTRANSFERASE INCREASED [None]
  - ASPARTATE AMINOTRANSFERASE INCREASED [None]
  - HEPATIC ENZYME INCREASED [None]
